FAERS Safety Report 16419645 (Version 1)
Quarter: 2019Q2

REPORT INFORMATION
  Report Type: Spontaneous
  Country: US (occurrence: US)
  Receive Date: 20190612
  Receipt Date: 20190612
  Transmission Date: 20190711
  Serious: Yes (Other)
  Sender: FDA-Public Use
  Company Number: US-OXFORD PHARMACEUTICALS, LLC-2019OXF00095

PATIENT
  Sex: Female

DRUGS (11)
  1. ALPRAZOLAM. [Suspect]
     Active Substance: ALPRAZOLAM
     Indication: POST-TRAUMATIC STRESS DISORDER
  2. ALPRAZOLAM. [Suspect]
     Active Substance: ALPRAZOLAM
     Indication: ANXIETY
     Dosage: UNK
     Route: 042
  3. ALPRAZOLAM. [Suspect]
     Active Substance: ALPRAZOLAM
     Indication: SLEEP TERROR
  4. SUCRALAFATE [Concomitant]
  5. ALPRAZOLAM. [Suspect]
     Active Substance: ALPRAZOLAM
     Indication: ANXIETY
     Dosage: UNK
     Route: 048
  6. ALPRAZOLAM. [Suspect]
     Active Substance: ALPRAZOLAM
     Indication: SLEEP TERROR
  7. OXYCODONE [Concomitant]
     Active Substance: OXYCODONE
  8. UNSPECIFIED VITAMINS [Concomitant]
     Active Substance: VITAMINS
  9. ALPRAZOLAM. [Suspect]
     Active Substance: ALPRAZOLAM
     Indication: POST-TRAUMATIC STRESS DISORDER
  10. FENTANYL. [Concomitant]
     Active Substance: FENTANYL
     Dosage: UNK, EVERY 48 HOURS
  11. UNSPECIFIED STOMACH MEDICATIONS [Concomitant]

REACTIONS (11)
  - Facial bones fracture [Unknown]
  - Oxygen saturation decreased [Unknown]
  - Haemorrhage [Unknown]
  - Drug intolerance [Unknown]
  - Concussion [Unknown]
  - Transfusion with incompatible blood [Unknown]
  - Multi-organ disorder [Unknown]
  - Overdose [Unknown]
  - Drug ineffective [Unknown]
  - Feeling cold [Unknown]
  - Fall [Unknown]

NARRATIVE: CASE EVENT DATE: 2019
